FAERS Safety Report 5664974-3 (Version None)
Quarter: 2008Q1

REPORT INFORMATION
  Report Type: 
  Country: None (occurrence: None)
  Receive Date: 20080314
  Receipt Date: 20080310
  Transmission Date: 20080703
  Serious: Yes (Death, Other)
  Sender: FDA-Public Use
  Company Number: US-BRISTOL-MYERS SQUIBB COMPANY-14108781

PATIENT
  Age: 59 Year
  Sex: Male

DRUGS (5)
  1. ARIPIPRAZOLE [Suspect]
  2. CLOZAPINE [Suspect]
  3. OLANZAPINE [Suspect]
  4. QUETIAPINE [Suspect]
  5. RISPERIDONE [Suspect]

REACTIONS (3)
  - PARKINSONISM [None]
  - PNEUMONIA [None]
  - TORTICOLLIS [None]
